FAERS Safety Report 5763213-2 (Version None)
Quarter: 2008Q2

REPORT INFORMATION
  Report Type: 
  Country: None (occurrence: None)
  Receive Date: 20080609
  Receipt Date: 20080528
  Transmission Date: 20081010
  Serious: Yes (Other)
  Sender: FDA-Public Use
  Company Number: JP-PFIZER INC-2008046383

PATIENT
  Age: 85 Year
  Sex: Male

DRUGS (3)
  1. UNASYN [Suspect]
     Indication: URINARY TRACT INFECTION
     Route: 042
     Dates: start: 20080425, end: 20080425
  2. NITRODERM [Concomitant]
     Route: 062
  3. MEPTIN [Concomitant]

REACTIONS (2)
  - BRADYCARDIA [None]
  - SICK SINUS SYNDROME [None]
